FAERS Safety Report 7023840-1 (Version None)
Quarter: 2010Q3

REPORT INFORMATION
  Report Type: 
  Country: None (occurrence: None)
  Receive Date: 20100916
  Receipt Date: 20100528
  Transmission Date: 20110219
  Serious: No
  Sender: FDA-Public Use
  Company Number: DKLU1062607(0)

PATIENT
  Age: 13 Month
  Sex: Male

DRUGS (5)
  1. SABRIL [Suspect]
     Indication: INFANTILE SPASMS
     Dosage: (250 MG MILLIGRAM(S), 1 IN 1 D, ORAL), (500 MG MILLIGRAM(S), 1 IN 1 D, ORAL)
     Route: 048
     Dates: start: 20100507
  2. SABRIL [Suspect]
     Indication: TUBEROUS SCLEROSIS
     Dosage: (250 MG MILLIGRAM(S), 1 IN 1 D, ORAL), (500 MG MILLIGRAM(S), 1 IN 1 D, ORAL)
     Route: 048
     Dates: start: 20100507
  3. SABRIL [Suspect]
     Indication: INFANTILE SPASMS
     Dosage: (250 MG MILLIGRAM(S), 1 IN 1 D, ORAL), (500 MG MILLIGRAM(S), 1 IN 1 D, ORAL)
     Route: 048
     Dates: start: 20100507
  4. SABRIL [Suspect]
     Indication: TUBEROUS SCLEROSIS
     Dosage: (250 MG MILLIGRAM(S), 1 IN 1 D, ORAL), (500 MG MILLIGRAM(S), 1 IN 1 D, ORAL)
     Route: 048
     Dates: start: 20100507
  5. TOPAMAX [Concomitant]

REACTIONS (3)
  - EAR INFECTION [None]
  - PSYCHOMOTOR HYPERACTIVITY [None]
  - SLEEP DISORDER [None]
